FAERS Safety Report 15044585 (Version 3)
Quarter: 2018Q3

REPORT INFORMATION
  Report Type: Report from Study
  Country: US (occurrence: US)
  Receive Date: 20180621
  Receipt Date: 20180801
  Transmission Date: 20181010
  Serious: Yes (Other)
  Sender: FDA-Public Use
  Company Number: US-GILEAD-2018-0346295

PATIENT
  Age: 23 Year
  Sex: Female
  Weight: 103.86 kg

DRUGS (5)
  1. AMBRISENTAN [Suspect]
     Active Substance: AMBRISENTAN
     Indication: PULMONARY ARTERIAL HYPERTENSION
     Dosage: 10 MG, UNK
     Route: 065
     Dates: start: 20170712
  2. SILDENAFIL. [Concomitant]
     Active Substance: SILDENAFIL
  3. ONDANSETRON [Concomitant]
     Active Substance: ONDANSETRON
  4. PRENATAL VITAMINS                  /02014401/ [Concomitant]
     Active Substance: VITAMINS
  5. ORENITRAM [Concomitant]
     Active Substance: TREPROSTINIL

REACTIONS (1)
  - Maternal exposure during pregnancy [Not Recovered/Not Resolved]

NARRATIVE: CASE EVENT DATE: 201805
